FAERS Safety Report 4964633-6 (Version None)
Quarter: 2006Q2

REPORT INFORMATION
  Report Type: 
  Country: None (occurrence: None)
  Receive Date: 20060406
  Receipt Date: 20051122
  Transmission Date: 20061013
  Serious: Yes (Hospitalization, Other)
  Sender: FDA-Public Use
  Company Number: US-MERCK-0511USA04092

PATIENT
  Age: 74 Year
  Sex: Female
  Weight: 93 kg

DRUGS (9)
  1. VIOXX [Suspect]
     Route: 048
     Dates: start: 20000201
  2. VIOXX [Suspect]
     Route: 048
     Dates: start: 20010301
  3. VIOXX [Suspect]
     Route: 048
     Dates: start: 20030327
  4. VIOXX [Suspect]
     Route: 048
     Dates: end: 20040901
  5. DIURETIC (UNSPECIFIED) [Concomitant]
     Route: 065
  6. ATENOLOL [Concomitant]
     Route: 065
  7. INSULIN [Concomitant]
     Route: 065
  8. BACLOFEN [Concomitant]
     Route: 065
  9. EXTRA STRENGTH TYLENOL [Concomitant]
     Route: 065

REACTIONS (22)
  - ABNORMAL SLEEP-RELATED EVENT [None]
  - ACCELERATED HYPERTENSION [None]
  - ASTHENIA [None]
  - CEREBROVASCULAR ACCIDENT [None]
  - DIABETIC COMPLICATION [None]
  - DIVERTICULITIS [None]
  - DYSPNOEA EXERTIONAL [None]
  - FALL [None]
  - GASTROOESOPHAGEAL REFLUX DISEASE [None]
  - INTESTINAL RESECTION [None]
  - INTRAOCULAR PRESSURE INCREASED [None]
  - MYOCARDIAL INFARCTION [None]
  - PAIN IN EXTREMITY [None]
  - POLLAKIURIA [None]
  - PRESCRIBED OVERDOSE [None]
  - RALES [None]
  - SINUS ARRHYTHMIA [None]
  - TRANSIENT ISCHAEMIC ATTACK [None]
  - TUBERCULIN TEST POSITIVE [None]
  - URINARY TRACT INFECTION [None]
  - VISUAL ACUITY REDUCED [None]
  - WHOLE BLOOD TRANSFUSION [None]
